FAERS Safety Report 19100317 (Version 8)
Quarter: 2022Q1

REPORT INFORMATION
  Report Type: Report from Study
  Country: FR (occurrence: FR)
  Receive Date: 20210407
  Receipt Date: 20220208
  Transmission Date: 20220423
  Serious: No
  Sender: FDA-Public Use
  Company Number: FR-JNJFOC-20210322179

PATIENT
  Age: 52 Year
  Sex: Female
  Weight: 68 kg

DRUGS (12)
  1. SPRAVATO [Suspect]
     Active Substance: ESKETAMINE
     Indication: Depression
     Dosage: 56 MG, TOTAL 1 DOSE
     Dates: start: 20210222, end: 20210222
  2. SPRAVATO [Suspect]
     Active Substance: ESKETAMINE
     Dates: start: 20210225, end: 20210318
  3. SPRAVATO [Suspect]
     Active Substance: ESKETAMINE
     Dates: start: 20210322, end: 20210628
  4. SPRAVATO [Suspect]
     Active Substance: ESKETAMINE
     Dates: start: 20210712, end: 20210906
  5. SPRAVATO [Suspect]
     Active Substance: ESKETAMINE
     Dates: start: 20210920, end: 20210927
  6. SPRAVATO [Suspect]
     Active Substance: ESKETAMINE
     Dates: start: 20211004, end: 20211025
  7. SPRAVATO [Suspect]
     Active Substance: ESKETAMINE
  8. VALIUM [Concomitant]
     Active Substance: DIAZEPAM
     Indication: Prophylaxis
     Dosage: ^5^
     Dates: start: 20200930, end: 20210311
  9. PROZAC [Concomitant]
     Active Substance: FLUOXETINE HYDROCHLORIDE
     Indication: Antidepressant therapy
     Dates: start: 20200903, end: 20210325
  10. PROZAC [Concomitant]
     Active Substance: FLUOXETINE HYDROCHLORIDE
     Dates: start: 20210326
  11. DEPAKOTE [Concomitant]
     Active Substance: DIVALPROEX SODIUM
     Indication: Drug therapy
     Dates: start: 20210311, end: 20210322
  12. DEPAKOTE [Concomitant]
     Active Substance: DIVALPROEX SODIUM
     Dates: start: 20210323

REACTIONS (5)
  - Hypomania [Recovered/Resolved]
  - Panic attack [Recovered/Resolved]
  - Dissociation [Recovered/Resolved]
  - Anxiety [Recovered/Resolved]
  - Drug ineffective [Unknown]

NARRATIVE: CASE EVENT DATE: 20210304
